FAERS Safety Report 16928070 (Version 1)
Quarter: 2019Q4

REPORT INFORMATION
  Report Type: Spontaneous
  Country: US (occurrence: US)
  Receive Date: 20191017
  Receipt Date: 20191017
  Transmission Date: 20200122
  Serious: Yes (Hospitalization, Other)
  Sender: FDA-Public Use
  Company Number: US-009507513-1910USA010414

PATIENT
  Sex: Male

DRUGS (1)
  1. KEYTRUDA [Suspect]
     Active Substance: PEMBROLIZUMAB
     Indication: NON-SMALL CELL LUNG CANCER
     Dosage: EVERY 3 OR 6 WEEKS
     Route: 042
     Dates: start: 20181126, end: 201907

REACTIONS (9)
  - Rheumatoid arthritis [Not Recovered/Not Resolved]
  - Dizziness [Not Recovered/Not Resolved]
  - Gastrointestinal inflammation [Not Recovered/Not Resolved]
  - Dyspnoea [Not Recovered/Not Resolved]
  - Food poisoning [Not Recovered/Not Resolved]
  - Seizure [Not Recovered/Not Resolved]
  - Rheumatoid arthritis [Recovered/Resolved]
  - Inappropriate schedule of product administration [Unknown]
  - Renal pain [Not Recovered/Not Resolved]

NARRATIVE: CASE EVENT DATE: 20181126
